FAERS Safety Report 7209806-7 (Version None)
Quarter: 2011Q1

REPORT INFORMATION
  Report Type: 
  Country: None (occurrence: None)
  Receive Date: 20110104
  Receipt Date: 20101213
  Transmission Date: 20110831
  Serious: Yes (Congenital Anomaly)
  Sender: FDA-Public Use
  Company Number: NO-MERCK-1012NOR00001B1

PATIENT
  Age: 3 Year
  Sex: Male

DRUGS (4)
  1. AZATHIOPRINE [Suspect]
     Route: 064
  2. FOSAMAX [Suspect]
     Route: 064
  3. BUDESONIDE [Suspect]
     Route: 064
  4. PREDNISOLONE [Suspect]
     Route: 064

REACTIONS (2)
  - DRUG EXPOSURE DURING PREGNANCY [None]
  - TOOTH HYPOPLASIA [None]
